FAERS Safety Report 9270599 (Version 4)
Quarter: 2013Q3

REPORT INFORMATION
  Report Type: Report from Study
  Country: NL (occurrence: NL)
  Receive Date: 20130503
  Receipt Date: 20130814
  Transmission Date: 20140515
  Serious: Yes (Life-Threatening)
  Sender: FDA-Public Use
  Company Number: NL-CELGENEUS-114-21880-13044773

PATIENT
  Age: 72 Year
  Sex: Female

DRUGS (8)
  1. REVLIMID [Suspect]
     Indication: PLASMA CELL MYELOMA
     Route: 048
     Dates: start: 20100602
  2. REVLIMID [Suspect]
     Route: 048
     Dates: start: 20130129
  3. REVLIMID [Suspect]
     Route: 048
     Dates: start: 20130326, end: 20130416
  4. MELPHALAN [Suspect]
     Indication: PLASMA CELL MYELOMA
     Route: 065
     Dates: start: 20100602
  5. PREDNISONE [Suspect]
     Indication: PLASMA CELL MYELOMA
     Route: 065
  6. ASA [Concomitant]
     Indication: PRODUCT USED FOR UNKNOWN INDICATION
     Route: 048
     Dates: start: 20100602, end: 20130416
  7. ENALAPRIL [Concomitant]
     Indication: HYPERTENSION
     Route: 048
     Dates: start: 1998, end: 20130423
  8. SIMVASTATIN [Concomitant]
     Indication: HYPERCHOLESTEROLAEMIA
     Route: 048
     Dates: start: 1998, end: 20130423

REACTIONS (3)
  - Invasive lobular breast carcinoma [Recovered/Resolved with Sequelae]
  - Invasive lobular breast carcinoma [Recovered/Resolved with Sequelae]
  - Mucinous breast carcinoma [Recovered/Resolved with Sequelae]
